FAERS Safety Report 24620932 (Version 1)
Quarter: 2024Q4

REPORT INFORMATION
  Report Type: Spontaneous
  Country: US (occurrence: None)
  Receive Date: 20241114
  Receipt Date: 20241114
  Transmission Date: 20250114
  Serious: No
  Sender: Public
  Company Number: None

PATIENT
  Age: 54 Year
  Sex: Female

DRUGS (1)
  1. YESCARTA [Suspect]
     Active Substance: AXICABTAGENE CILOLEUCEL
     Dates: start: 20241007

REACTIONS (5)
  - Cytokine release syndrome [None]
  - Hypotension [None]
  - Immune effector cell-associated neurotoxicity syndrome [None]
  - Aphasia [None]
  - Disease recurrence [None]

NARRATIVE: CASE EVENT DATE: 20241012
